FAERS Safety Report 13592837 (Version 2)
Quarter: 2017Q3

REPORT INFORMATION
  Report Type: Spontaneous
  Country: FI (occurrence: FI)
  Receive Date: 20170530
  Receipt Date: 20170710
  Transmission Date: 20171127
  Serious: Yes (Hospitalization)
  Sender: FDA-Public Use
  Company Number: FI-SA-2017SA094286

PATIENT
  Sex: Female

DRUGS (14)
  1. VITAMIN D [Concomitant]
     Active Substance: CHOLECALCIFEROL
  2. BETOLVEX [Concomitant]
     Active Substance: CYANOCOBALAMIN
     Indication: VITAMIN SUPPLEMENTATION
     Route: 048
  3. VI-SIBLIN [Suspect]
     Active Substance: PLANTAGO OVATA LEAF
     Indication: DIARRHOEA
     Route: 065
     Dates: start: 201705
  4. NITROFUR-C [Concomitant]
     Indication: PROPHYLAXIS URINARY TRACT INFECTION
     Dosage: ONCE PER DAY IN THE EVENINGS
     Route: 048
  5. BACLOFEN. [Concomitant]
     Active Substance: BACLOFEN
     Indication: MULTIPLE SCLEROSIS
     Route: 048
  6. PANADOL FORTE [Concomitant]
     Active Substance: ACETAMINOPHEN\CAFFEINE
     Dosage: 1 G WHEN NEEDED (MAXIMUM 3 G PER DAY)
     Route: 048
  7. LEMTRADA [Suspect]
     Active Substance: ALEMTUZUMAB
     Indication: RELAPSING-REMITTING MULTIPLE SCLEROSIS
     Route: 041
     Dates: start: 20170403, end: 20170407
  8. VALAVIR [Concomitant]
     Route: 048
     Dates: start: 201704
  9. BUVENTOL [Concomitant]
     Dosage: WHEN NEEDED (MAXIMUM 6 DOSES PER DAY)
     Route: 055
  10. CORTISONE [Concomitant]
     Active Substance: CORTISONE\HYDROCORTISONE
     Dates: start: 20170406, end: 20170407
  11. VENTOLIN [Concomitant]
     Active Substance: ALBUTEROL SULFATE
     Indication: HYPERSENSITIVITY
  12. ATARAX [Concomitant]
     Active Substance: HYDROXYZINE HYDROCHLORIDE
     Dosage: 25 MG WHEN NEEDED (MAXIMUM 100 MG PER DAY)
     Route: 048
  13. CORTISONE [Concomitant]
     Active Substance: CORTISONE\HYDROCORTISONE
     Dates: start: 20170403, end: 20170405
  14. MERCILON [Concomitant]
     Active Substance: DESOGESTREL\ETHINYL ESTRADIOL
     Indication: CONTRACEPTION
     Dosage: DOSE/UNIT/FREQUENCY: ACCORDING TO THE INSTRUCTION ON THE PATIENT INFORMATION LEAFLET
     Route: 048

REACTIONS (22)
  - Eosinophilia [Unknown]
  - Upper respiratory tract infection [Unknown]
  - Rash macular [Unknown]
  - Retching [Unknown]
  - Nausea [Unknown]
  - Dyspnoea [Unknown]
  - Pyrexia [Unknown]
  - Viral infection [Unknown]
  - Pyrexia [Unknown]
  - Burning sensation [Unknown]
  - Muscular weakness [Recovering/Resolving]
  - Sneezing [Unknown]
  - Hypokalaemia [Not Recovered/Not Resolved]
  - Lymphopenia [Unknown]
  - Rash [Unknown]
  - C-reactive protein increased [Unknown]
  - Dyspnoea [Unknown]
  - Diarrhoea [Unknown]
  - Condition aggravated [Unknown]
  - Nasal congestion [Unknown]
  - Gastroenteritis [Unknown]
  - Abdominal pain [Unknown]

NARRATIVE: CASE EVENT DATE: 2017
